FAERS Safety Report 21837481 (Version 3)
Quarter: 2025Q1

REPORT INFORMATION
  Report Type: Spontaneous
  Country: US (occurrence: US)
  Receive Date: 20230109
  Receipt Date: 20250115
  Transmission Date: 20250409
  Serious: Yes (Other)
  Sender: PFIZER
  Company Number: US-PFIZER INC-PV202300001438

PATIENT
  Age: 67 Year
  Sex: Female

DRUGS (2)
  1. XELJANZ XR [Suspect]
     Active Substance: TOFACITINIB CITRATE
     Indication: Still^s disease
     Dosage: 22 MG, 2 TABLET EVERY MORNING
     Route: 048
  2. XELJANZ XR [Suspect]
     Active Substance: TOFACITINIB CITRATE
     Dosage: 11 MG, DAILY
     Dates: end: 20240502

REACTIONS (9)
  - Appendicitis [Unknown]
  - Arthralgia [Unknown]
  - Joint stiffness [Not Recovered/Not Resolved]
  - Musculoskeletal stiffness [Unknown]
  - Bradykinesia [Unknown]
  - Sensitivity to weather change [Unknown]
  - COVID-19 [Unknown]
  - Off label use [Unknown]
  - Drug effective for unapproved indication [Unknown]

NARRATIVE: CASE EVENT DATE: 20241201
